FAERS Safety Report 8405739-9 (Version None)
Quarter: 2012Q2

REPORT INFORMATION
  Report Type: 
  Country: None (occurrence: None)
  Receive Date: 20120530
  Receipt Date: 20120530
  Transmission Date: 20120825
  Serious: Yes (Life-Threatening)
  Sender: FDA-Public Use
  Company Number: None

PATIENT
  Sex: Female
  Weight: 96.1626 kg

DRUGS (1)
  1. TIKOSYN [Suspect]
     Indication: ATRIAL FIBRILLATION
     Dosage: 0.25MG BID PO
     Route: 048
     Dates: start: 20120522, end: 20120522

REACTIONS (7)
  - DIZZINESS [None]
  - LOSS OF CONSCIOUSNESS [None]
  - VISUAL IMPAIRMENT [None]
  - HEADACHE [None]
  - BLOOD MAGNESIUM DECREASED [None]
  - RASH [None]
  - LONG QT SYNDROME [None]
